FAERS Safety Report 4966071-9 (Version None)
Quarter: 2006Q2

REPORT INFORMATION
  Report Type: 
  Country: None (occurrence: None)
  Receive Date: 20060403
  Receipt Date: 20060320
  Transmission Date: 20061013
  Serious: Yes (Other)
  Sender: FDA-Public Use
  Company Number: 8015826

PATIENT
  Age: 60 Year
  Sex: Male
  Weight: 80 kg

DRUGS (5)
  1. KEPPRA [Suspect]
     Dosage: 1000 MG/D
     Dates: start: 20040909, end: 20040915
  2. PHENHYDAN [Concomitant]
  3. METOCLOPRAMID [Concomitant]
  4. METOPROLOL TARTRATE [Concomitant]
  5. TACROLIMUS [Concomitant]

REACTIONS (8)
  - ABDOMINAL ABSCESS [None]
  - ACUTE PRERENAL FAILURE [None]
  - CONVULSION [None]
  - HYPOTENSION [None]
  - INFECTION [None]
  - LIVER ABSCESS [None]
  - SEPSIS [None]
  - STATUS EPILEPTICUS [None]
